FAERS Safety Report 7398896-7 (Version None)
Quarter: 2011Q1

REPORT INFORMATION
  Report Type: 
  Country: None (occurrence: None)
  Receive Date: 20110328
  Receipt Date: 20110217
  Transmission Date: 20110831
  Serious: No
  Sender: FDA-Public Use
  Company Number: 2011-00072

PATIENT
  Age: 63 Year
  Sex: Male
  Weight: 70.3075 kg

DRUGS (2)
  1. PLAVIX [Concomitant]
  2. ZICAM COLD REMEDY ZAVORS [Suspect]
     Dosage: TID X 2 DAYS
     Dates: start: 20110213, end: 20110214

REACTIONS (1)
  - AGEUSIA [None]
